FAERS Safety Report 9482457 (Version 2)
Quarter: 2014Q3

REPORT INFORMATION
  Report Type: Spontaneous
  Country: US (occurrence: US)
  Receive Date: 20130828
  Receipt Date: 20140905
  Transmission Date: 20150326
  Serious: Yes (Other)
  Sender: FDA-Public Use
  Company Number: US-PFIZER INC-2013244321

PATIENT
  Age: 88 Year
  Sex: Female

DRUGS (1)
  1. AROMASIN [Suspect]
     Active Substance: EXEMESTANE
     Indication: BREAST CANCER
     Dosage: 25 MG, UNK
     Dates: start: 20121207

REACTIONS (5)
  - Wrist fracture [Recovering/Resolving]
  - Wound [Unknown]
  - Fall [Unknown]
  - Disease progression [Unknown]
  - Breast cancer [Unknown]
